FAERS Safety Report 6689918-7 (Version None)
Quarter: 2010Q2

REPORT INFORMATION
  Report Type: 
  Country: None (occurrence: None)
  Receive Date: 20100421
  Receipt Date: 20100409
  Transmission Date: 20101027
  Serious: Yes (Hospitalization)
  Sender: FDA-Public Use
  Company Number: BR-MEDIMMUNE-MEDI-0011078

PATIENT
  Sex: Female

DRUGS (4)
  1. SYNAGIS [Suspect]
     Route: 030
     Dates: start: 20091015, end: 20091015
  2. FENOTEROL [Concomitant]
     Indication: BRONCHIAL DISORDER
     Dates: start: 20100314, end: 20100322
  3. CEPHALEXIN [Concomitant]
     Indication: INFECTION PROPHYLAXIS
     Route: 048
     Dates: start: 20100322, end: 20100326
  4. PREDNISOLONE [Concomitant]
     Route: 048
     Dates: start: 20100322, end: 20100324

REACTIONS (6)
  - BRONCHIOLITIS [None]
  - COUGH [None]
  - EAR INFECTION [None]
  - INFLUENZA [None]
  - PNEUMONIA [None]
  - PYREXIA [None]
